FAERS Safety Report 23246569 (Version 1)
Quarter: 2023Q4

REPORT INFORMATION
  Report Type: Spontaneous
  Country: CN (occurrence: CN)
  Receive Date: 20231130
  Receipt Date: 20231130
  Transmission Date: 20240110
  Serious: Yes (Hospitalization, Other)
  Sender: FDA-Public Use
  Company Number: CN-BAYER-2023A170130

PATIENT
  Age: 69 Year
  Sex: Female
  Weight: 79.5 kg

DRUGS (1)
  1. GLUCOBAY [Suspect]
     Active Substance: ACARBOSE
     Indication: Type 2 diabetes mellitus
     Dosage: 100 MG, TID
     Route: 048
     Dates: start: 20220108, end: 20231104

REACTIONS (22)
  - Drug-induced liver injury [Recovering/Resolving]
  - Hepatic failure [Recovering/Resolving]
  - Hepatitis viral [Recovering/Resolving]
  - Chronic gastritis [Recovering/Resolving]
  - Peptic ulcer [Recovering/Resolving]
  - Abdominal pain upper [Recovering/Resolving]
  - Abdominal distension [Recovering/Resolving]
  - Eructation [Recovering/Resolving]
  - Gastrooesophageal reflux disease [Recovering/Resolving]
  - Dyspepsia [Recovering/Resolving]
  - Nausea [Recovered/Resolved]
  - Vomiting [Recovered/Resolved]
  - Decreased appetite [Recovering/Resolving]
  - Functional gastrointestinal disorder [Recovering/Resolving]
  - Diarrhoea [Recovering/Resolving]
  - Gastrointestinal motility disorder [Recovering/Resolving]
  - Mean cell haemoglobin decreased [None]
  - Mean cell haemoglobin concentration decreased [None]
  - Mean platelet volume increased [None]
  - C-reactive protein increased [None]
  - Prothrombin time shortened [None]
  - Blood fibrinogen increased [None]

NARRATIVE: CASE EVENT DATE: 20230101
